FAERS Safety Report 9196150 (Version 1)
Quarter: 2013Q1

REPORT INFORMATION
  Report Type: Spontaneous
  Country: IN (occurrence: IN)
  Receive Date: 20130328
  Receipt Date: 20130328
  Transmission Date: 20140127
  Serious: Yes (Other)
  Sender: FDA-Public Use
  Company Number: IN-JNJFOC-20130312581

PATIENT
  Sex: Female

DRUGS (7)
  1. DOXORUBICIN [Suspect]
     Indication: BREAST CANCER
     Dosage: DAY 1
     Route: 042
  2. 5-FLUOROURACIL [Suspect]
     Indication: BREAST CANCER
     Dosage: DAY 1
     Route: 065
  3. CYCLOPHOSPHAMIDE [Suspect]
     Indication: BREAST CANCER
     Dosage: DAY 1
     Route: 065
  4. EPIRUBICIN [Suspect]
     Indication: BREAST CANCER
     Dosage: DAY 1
     Route: 065
  5. EPIRUBICIN [Suspect]
     Indication: BREAST CANCER
     Dosage: DAY 1
     Route: 065
  6. DOCETAXEL [Suspect]
     Indication: BREAST CANCER
     Dosage: DAY 1
     Route: 065
  7. TAMOXIFEN [Suspect]
     Indication: ENDOCRINE DISORDER
     Dosage: DAY 1
     Route: 065

REACTIONS (1)
  - Amenorrhoea [Unknown]
